FAERS Safety Report 6828269-4 (Version None)
Quarter: 2010Q3

REPORT INFORMATION
  Report Type: 
  Country: None (occurrence: None)
  Receive Date: 20100709
  Receipt Date: 20100702
  Transmission Date: 20110219
  Serious: Yes (Death)
  Sender: FDA-Public Use
  Company Number: BR-ROCHE-696772

PATIENT
  Sex: Female
  Weight: 33.5 kg

DRUGS (2)
  1. INTERFERON ALFA [Suspect]
     Indication: RENAL CELL CARCINOMA
     Dosage: DOSE: 3000000UI
     Route: 058
     Dates: start: 20100401, end: 20100406
  2. BEVACIZUMAB [Suspect]
     Indication: RENAL CELL CARCINOMA
     Dosage: DOSE: 25MG/ML 36MG
     Route: 042
     Dates: start: 20100401, end: 20100406

REACTIONS (1)
  - INTESTINAL HAEMORRHAGE [None]
